FAERS Safety Report 5522867-6 (Version None)
Quarter: 2007Q4

REPORT INFORMATION
  Report Type: 
  Country: None (occurrence: None)
  Receive Date: 20071121
  Receipt Date: 20071112
  Transmission Date: 20080405
  Serious: Yes (Hospitalization)
  Sender: FDA-Public Use
  Company Number: NO-RB-008368-07

PATIENT
  Age: 32 Year

DRUGS (3)
  1. SUBOXONE [Suspect]
     Dosage: DOSE REPORTED AS 32/8 MG.
     Route: 065
  2. RIVOTRIL [Concomitant]
     Indication: DRUG USE FOR UNKNOWN INDICATION
     Dosage: DOSAGE UNKNOWN
     Route: 065
  3. SUBUTEX [Concomitant]
     Indication: DRUG USE FOR UNKNOWN INDICATION
     Dosage: DOSAGE UNKNOWN
     Route: 065

REACTIONS (2)
  - BLOOD GLUCOSE ABNORMAL [None]
  - HYPOGLYCAEMIA [None]
